FAERS Safety Report 21079096 (Version 2)
Quarter: 2022Q3

REPORT INFORMATION
  Report Type: Spontaneous
  Country: DE (occurrence: DE)
  Receive Date: 20220713
  Receipt Date: 20220728
  Transmission Date: 20221027
  Serious: No
  Sender: FDA-Public Use
  Company Number: DE-DSJP-DSE-2022-123917

PATIENT
  Age: 65 Year
  Sex: Male

DRUGS (2)
  1. BEMPEDOIC ACID [Suspect]
     Active Substance: BEMPEDOIC ACID
     Indication: Hypercholesterolaemia
     Dosage: UNK
     Route: 065
     Dates: start: 202201, end: 2022
  2. BEMPEDOIC ACID [Suspect]
     Active Substance: BEMPEDOIC ACID
     Indication: Low density lipoprotein increased
     Dosage: UNK
     Route: 065
     Dates: start: 2022

REACTIONS (1)
  - Male sexual dysfunction [Unknown]

NARRATIVE: CASE EVENT DATE: 20220101
